FAERS Safety Report 5708177-2 (Version None)
Quarter: 2008Q2

REPORT INFORMATION
  Report Type: 
  Country: None (occurrence: None)
  Receive Date: 20080417
  Receipt Date: 20080414
  Transmission Date: 20081010
  Serious: Yes (Death, Hospitalization)
  Sender: FDA-Public Use
  Company Number: B0516591A

PATIENT
  Age: 46 Year
  Sex: Female

DRUGS (2)
  1. HYCAMTIN [Suspect]
     Indication: OVARIAN CANCER
     Dosage: 3MGM2 WEEKLY
     Route: 042
     Dates: start: 20050630, end: 20050708
  2. PACLITAXEL [Suspect]
     Indication: OVARIAN CANCER
     Dosage: 80MGM2 WEEKLY
     Route: 042
     Dates: start: 20050630, end: 20050708

REACTIONS (5)
  - ASCITES [None]
  - DEATH [None]
  - DISEASE PROGRESSION [None]
  - SUBILEUS [None]
  - THROMBOCYTOPENIA [None]
